FAERS Safety Report 17494728 (Version 1)
Quarter: 2020Q1

REPORT INFORMATION
  Report Type: Spontaneous
  Country: US (occurrence: US)
  Receive Date: 20200303
  Receipt Date: 20200303
  Transmission Date: 20200409
  Serious: Yes (Other)
  Sender: FDA-Public Use
  Company Number: None

PATIENT
  Age: 50 Year
  Sex: Female
  Weight: 130.5 kg

DRUGS (1)
  1. BOTOX [Suspect]
     Active Substance: ONABOTULINUMTOXINA
     Indication: MIGRAINE
     Dosage: ?          OTHER FREQUENCY:EVERY 84 DAYS;?
     Route: 030
     Dates: start: 20200225, end: 20200225

REACTIONS (8)
  - Blood pressure increased [None]
  - Conversion disorder [None]
  - Hypotonia [None]
  - Heart rate increased [None]
  - Motor dysfunction [None]
  - Malaise [None]
  - Blood glucose decreased [None]
  - Cerebrovascular accident [None]

NARRATIVE: CASE EVENT DATE: 20200225
